FAERS Safety Report 9652297 (Version 1)
Quarter: 2013Q4

REPORT INFORMATION
  Report Type: Spontaneous
  Country: US (occurrence: US)
  Receive Date: 20131029
  Receipt Date: 20131029
  Transmission Date: 20140711
  Serious: No
  Sender: FDA-Public Use
  Company Number: US-BIOGENIDEC-2013BI075458

PATIENT
  Age: 62 Year
  Sex: Female

DRUGS (5)
  1. TECFIDERA [Suspect]
     Indication: MULTIPLE SCLEROSIS
     Route: 048
     Dates: start: 20130706
  2. VYTORIN TAB 10-10 [Concomitant]
     Indication: BLOOD CHOLESTEROL
     Route: 048
     Dates: start: 20130202
  3. NEXIUM [Concomitant]
     Indication: ABDOMINAL DISCOMFORT
     Route: 048
     Dates: start: 20130412
  4. TAMOXIFEN TAB [Concomitant]
     Indication: BREAST CANCER
     Route: 048
     Dates: start: 20121126
  5. TRAMADOL TAB [Concomitant]
     Indication: PAIN
     Route: 048
     Dates: start: 20120509

REACTIONS (2)
  - Sinus disorder [Not Recovered/Not Resolved]
  - Dyspnoea [Not Recovered/Not Resolved]
